FAERS Safety Report 9837921 (Version 4)
Quarter: 2014Q4

REPORT INFORMATION
  Report Type: Spontaneous
  Country: US (occurrence: US)
  Receive Date: 20140123
  Receipt Date: 20141001
  Transmission Date: 20150529
  Serious: Yes (Hospitalization)
  Sender: FDA-Public Use
  Company Number: US-BAYER-2014-010206

PATIENT
  Age: 32 Year
  Sex: Female
  Weight: 57.6 kg

DRUGS (3)
  1. MIRENA [Suspect]
     Active Substance: LEVONORGESTREL
     Indication: CONTRACEPTION
     Dosage: 20 MCG/24HR, CONT
     Route: 015
     Dates: start: 20100730, end: 20120412
  2. XANAX [Concomitant]
     Active Substance: ALPRAZOLAM
  3. CYMBALTA [Concomitant]
     Active Substance: DULOXETINE HYDROCHLORIDE

REACTIONS (9)
  - Embedded device [None]
  - Depression [None]
  - Mental disorder [None]
  - Device difficult to use [None]
  - Anxiety [None]
  - Injury [None]
  - Emotional distress [None]
  - Pain [None]
  - Loss of libido [None]

NARRATIVE: CASE EVENT DATE: 201203
